FAERS Safety Report 5777101-9 (Version None)
Quarter: 2008Q2

REPORT INFORMATION
  Report Type: 
  Country: None (occurrence: None)
  Receive Date: 20080618
  Receipt Date: 20080610
  Transmission Date: 20081010
  Serious: Yes (Life-Threatening)
  Sender: FDA-Public Use
  Company Number: IT-ASTRAZENECA-2008SE02696

PATIENT
  Age: 109 Month
  Sex: Male

DRUGS (1)
  1. MEPRAL [Suspect]
     Indication: GASTROOESOPHAGEAL REFLUX DISEASE
     Route: 048
     Dates: start: 20071015, end: 20071025

REACTIONS (3)
  - ACUTE PSYCHOSIS [None]
  - DEPRESSION [None]
  - SUICIDE ATTEMPT [None]
